FAERS Safety Report 5017901-6 (Version None)
Quarter: 2006Q2

REPORT INFORMATION
  Report Type: 
  Country: None (occurrence: None)
  Receive Date: 20060605
  Receipt Date: 20060525
  Transmission Date: 20061013
  Serious: Yes (Other)
  Sender: FDA-Public Use
  Company Number: PHFR2006GB01819

PATIENT
  Sex: Male

DRUGS (10)
  1. NEORAL [Suspect]
     Indication: RENAL TRANSPLANT
     Dosage: 100 MG, BID
     Route: 065
     Dates: start: 20020101
  2. ASPIRIN [Concomitant]
     Route: 065
  3. ATENOLOL [Concomitant]
     Route: 065
  4. ATORVASTATIN CALCIUM [Concomitant]
     Route: 065
  5. DOXAZOSIN [Concomitant]
     Route: 065
  6. ISONIAZID [Concomitant]
     Route: 065
  7. MYCOPHENOLATE MOFETIL [Concomitant]
     Route: 065
  8. PERINDOPRIL [Concomitant]
     Route: 065
  9. PYRIDOXINE HCL [Concomitant]
     Route: 065
  10. LAMIVUDINE [Concomitant]
     Route: 065

REACTIONS (1)
  - SPERMATOZOA PROGRESSIVE MOTILITY DECREASED [None]
